FAERS Safety Report 7692811-4 (Version None)
Quarter: 2011Q3

REPORT INFORMATION
  Report Type: 
  Country: None (occurrence: None)
  Receive Date: 20110819
  Receipt Date: 20110808
  Transmission Date: 20111222
  Serious: Yes (Hospitalization, Other)
  Sender: FDA-Public Use
  Company Number: US-ELI_LILLY_AND_COMPANY-US201001003038

PATIENT
  Sex: Female

DRUGS (13)
  1. NOVOLOG [Concomitant]
     Dosage: UNK, AS NEEDED
  2. NOVOLIN 70/30 [Concomitant]
     Dates: start: 20060101, end: 20080101
  3. KAY CIEL DURA-TABS [Concomitant]
     Dosage: 10 MEQ, QOD
  4. ADALAT [Concomitant]
  5. BYETTA [Suspect]
     Dosage: UNK, UNKNOWN
     Dates: start: 20070110, end: 20080312
  6. NOVOLOG [Concomitant]
     Dosage: 1000 U, UNK
     Dates: start: 20050101
  7. ZESTRIL [Concomitant]
     Dosage: 5 MG, DAILY (1/D)
  8. ASPIRIN [Concomitant]
     Dosage: 1 D/F, DAILY (1/D)
  9. LASIX [Concomitant]
     Dosage: 20 MG, DAILY (1/D)
  10. LANTUS [Concomitant]
     Dosage: 30 U, EACH EVENING
  11. CARDIZEM [Concomitant]
     Dosage: 240 MG, DAILY (1/D)
  12. LANTUS [Concomitant]
     Dosage: 1000 U, UNK
     Dates: start: 20050101
  13. NOVOLOG [Concomitant]
     Dosage: 15 U, 3/D

REACTIONS (8)
  - PANCREATITIS ACUTE [None]
  - OFF LABEL USE [None]
  - BACK PAIN [None]
  - WEIGHT DECREASED [None]
  - PANCREATIC MASS [None]
  - EPISTAXIS [None]
  - ABDOMINAL PAIN UPPER [None]
  - PANCREATITIS CHRONIC [None]
